FAERS Safety Report 7002468-3 (Version None)
Quarter: 2010Q3

REPORT INFORMATION
  Report Type: 
  Country: None (occurrence: None)
  Receive Date: 20100920
  Receipt Date: 20100916
  Transmission Date: 20110219
  Serious: Yes (Hospitalization, Other)
  Sender: FDA-Public Use
  Company Number: CN-BRISTOL-MYERS SQUIBB COMPANY-15242522

PATIENT
  Age: 42 Year
  Sex: Male

DRUGS (1)
  1. BARACLUDE [Suspect]
     Indication: CHRONIC HEPATITIS
     Route: 048
     Dates: start: 20100705, end: 20100813

REACTIONS (2)
  - ABDOMINAL PAIN UPPER [None]
  - HEPATOMEGALY [None]
